FAERS Safety Report 6391177-X (Version None)
Quarter: 2009Q4

REPORT INFORMATION
  Report Type: 
  Country: None (occurrence: None)
  Receive Date: 20091006
  Receipt Date: 20091006
  Transmission Date: 20100525
  Serious: Yes (Hospitalization)
  Sender: FDA-Public Use
  Company Number: None

PATIENT
  Sex: Female

DRUGS (2)
  1. DEPAKOTE ER [Suspect]
     Indication: AFFECTIVE DISORDER
     Dosage: 500 MG DAILY PO
     Route: 048
     Dates: start: 20060814, end: 20090825
  2. CITALOPRAM 20 MG APOTEX [Suspect]
     Indication: DEPRESSION
     Dosage: 20 MG DAILY PO
     Route: 048
     Dates: start: 20080424, end: 20090825

REACTIONS (6)
  - DEHYDRATION [None]
  - HYPOCHLORAEMIA [None]
  - INAPPROPRIATE ANTIDIURETIC HORMONE SECRETION [None]
  - METABOLIC ALKALOSIS [None]
  - NAUSEA [None]
  - VOMITING [None]
